FAERS Safety Report 9309364 (Version 1)
Quarter: 2013Q2

REPORT INFORMATION
  Report Type: Spontaneous
  Country: US (occurrence: US)
  Receive Date: 20130525
  Receipt Date: 20130525
  Transmission Date: 20140414
  Serious: No
  Sender: FDA-Public Use
  Company Number: US-BRISTOL-MYERS SQUIBB COMPANY-18582023

PATIENT
  Age: 73 Year
  Sex: Female
  Weight: 83.9 kg

DRUGS (6)
  1. BYDUREON 2MG VIAL + SYRINGE [Suspect]
     Indication: TYPE 2 DIABETES MELLITUS
     Route: 058
     Dates: start: 20130113
  2. LEVEMIR [Concomitant]
     Indication: TYPE 2 DIABETES MELLITUS
     Route: 058
  3. JANUVIA [Concomitant]
     Indication: TYPE 2 DIABETES MELLITUS
     Route: 048
     Dates: end: 201301
  4. VICTOZA [Concomitant]
     Indication: TYPE 2 DIABETES MELLITUS
     Route: 058
     Dates: end: 20130112
  5. LANTUS [Concomitant]
     Indication: TYPE 2 DIABETES MELLITUS
     Route: 058
  6. FLUOCINONIDE [Concomitant]
     Indication: PRURITUS
     Route: 061

REACTIONS (7)
  - Blood glucose increased [Recovering/Resolving]
  - Weight increased [Unknown]
  - Local swelling [Recovering/Resolving]
  - Pruritus [Not Recovered/Not Resolved]
  - Abdominal pain lower [Recovered/Resolved]
  - Flatulence [Recovering/Resolving]
  - Off label use [Not Recovered/Not Resolved]
